FAERS Safety Report 12304289 (Version 1)
Quarter: 2016Q2

REPORT INFORMATION
  Report Type: Spontaneous
  Country: US (occurrence: US)
  Receive Date: 20160426
  Receipt Date: 20160426
  Transmission Date: 20160815
  Serious: Yes (Life-Threatening)
  Sender: FDA-Public Use
  Company Number: US-HOSPIRA-3110325

PATIENT

DRUGS (2)
  1. BUPIVACAINE HYDROCHLORIDE. [Suspect]
     Active Substance: BUPIVACAINE HYDROCHLORIDE
     Indication: ANAESTHESIA
     Route: 037
     Dates: start: 20151203
  2. BUPIVACAINE. [Suspect]
     Active Substance: BUPIVACAINE
     Indication: ANAESTHESIA
     Route: 037
     Dates: start: 20151203

REACTIONS (1)
  - Cardiac arrest [Recovered/Resolved]

NARRATIVE: CASE EVENT DATE: 20151203
